FAERS Safety Report 10217824 (Version 1)
Quarter: 2014Q2

REPORT INFORMATION
  Report Type: Spontaneous
  Country: GB (occurrence: GB)
  Receive Date: 20140604
  Receipt Date: 20140604
  Transmission Date: 20141212
  Serious: Yes (Other)
  Sender: FDA-Public Use
  Company Number: GB-BRISTOL-MYERS SQUIBB COMPANY-20866422

PATIENT
  Age: 92 Year
  Sex: Female

DRUGS (6)
  1. ELIQUIS [Suspect]
     Indication: ATRIAL FIBRILLATION
     Dosage: 2.5MG TABS
     Route: 048
     Dates: start: 2014
  2. ADCAL [Concomitant]
  3. BISOPROLOL [Concomitant]
  4. FOSAMAX [Concomitant]
  5. AMITRIPTYLINE HCL [Concomitant]
  6. PARACETAMOL [Concomitant]

REACTIONS (1)
  - Trigeminal neuralgia [Not Recovered/Not Resolved]
